FAERS Safety Report 7905854-X (Version None)
Quarter: 2011Q4

REPORT INFORMATION
  Report Type: 
  Country: None (occurrence: None)
  Receive Date: 20111110
  Receipt Date: 20111107
  Transmission Date: 20120403
  Serious: No
  Sender: FDA-Public Use
  Company Number: US-PFIZER INC-2011233498

PATIENT
  Sex: Female

DRUGS (1)
  1. NIFEDIPINE [Suspect]

REACTIONS (1)
  - DRUG INEFFECTIVE [None]
